FAERS Safety Report 7945150-8 (Version None)
Quarter: 2011Q4

REPORT INFORMATION
  Report Type: 
  Country: None (occurrence: None)
  Receive Date: 20111129
  Receipt Date: 20111126
  Transmission Date: 20120403
  Serious: Yes (Other)
  Sender: FDA-Public Use
  Company Number: US-PFIZER INC-2011288568

PATIENT
  Age: 91 Year
  Sex: Female

DRUGS (1)
  1. ROBITUSSIN DM [Suspect]
     Indication: BRONCHITIS
     Dosage: UNK
     Dates: start: 20111101

REACTIONS (2)
  - APHAGIA [None]
  - DIARRHOEA [None]
